FAERS Safety Report 25969342 (Version 1)
Quarter: 2025Q4

REPORT INFORMATION
  Report Type: Spontaneous
  Country: US (occurrence: US)
  Receive Date: 20251028
  Receipt Date: 20251028
  Transmission Date: 20260118
  Serious: No
  Sender: INSUD PHARMA
  Company Number: US-AGILE THERAPEUTICS, INC.-US-AGI-2025-000943

PATIENT

DRUGS (2)
  1. TWIRLA [Suspect]
     Active Substance: ETHINYL ESTRADIOL\LEVONORGESTREL
     Indication: Product used for unknown indication
     Dosage: 120 MCG/DAY LEVONORGESTREL AND 30 MCG/DAY ETHINYL ESTRADIOL
     Route: 062
  2. TWIRLA [Suspect]
     Active Substance: ETHINYL ESTRADIOL\LEVONORGESTREL
     Indication: Contraception

REACTIONS (3)
  - Skin reaction [Unknown]
  - Dermatitis [Unknown]
  - Rash [Unknown]
